FAERS Safety Report 9404128 (Version 1)
Quarter: 2013Q3

REPORT INFORMATION
  Report Type: Spontaneous
  Country: PT (occurrence: PT)
  Receive Date: 20130717
  Receipt Date: 20130717
  Transmission Date: 20140515
  Serious: Yes (Hospitalization)
  Sender: FDA-Public Use
  Company Number: PT-MERCK-1307PRT005019

PATIENT
  Sex: Male

DRUGS (9)
  1. SINEMET CR [Suspect]
     Indication: PARKINSON^S DISEASE
     Route: 048
     Dates: start: 2011
  2. DONEPEZIL HYDROCHLORIDE [Interacting]
     Indication: DEMENTIA
     Route: 048
  3. RIVOTRIL [Concomitant]
     Indication: DEMENTIA
     Route: 048
  4. NEBIVOLOL [Concomitant]
     Indication: HYPERTENSION
     Route: 048
     Dates: start: 201305, end: 20130617
  5. DIAMICRON [Concomitant]
     Route: 048
     Dates: end: 20130617
  6. ATORVASTATIN [Concomitant]
     Indication: HYPERCHOLESTEROLAEMIA
     Route: 048
  7. LERCANIDIPINE [Concomitant]
     Indication: HYPERTENSION
     Route: 048
     Dates: end: 20130617
  8. CO-DIOVAN [Concomitant]
     Indication: HYPERTENSION
     Route: 048
     Dates: end: 20130617
  9. MOCLOBEMIDE [Concomitant]
     Indication: HYPERTENSION
     Route: 048

REACTIONS (2)
  - Bradycardia [Recovering/Resolving]
  - Dizziness [Recovering/Resolving]
